FAERS Safety Report 11858171 (Version 1)
Quarter: 2015Q4

REPORT INFORMATION
  Report Type: Spontaneous
  Country: US (occurrence: US)
  Receive Date: 20151222
  Receipt Date: 20151222
  Transmission Date: 20160305
  Serious: No
  Sender: FDA-Public Use
  Company Number: US-TEVA-608687USA

PATIENT
  Sex: Male

DRUGS (1)
  1. TRAZODONE [Suspect]
     Active Substance: TRAZODONE HYDROCHLORIDE
     Dosage: 150 MILLIGRAM DAILY;
     Route: 048

REACTIONS (4)
  - Middle insomnia [Unknown]
  - Insomnia [Unknown]
  - Sleep disorder [Unknown]
  - Drug ineffective [Unknown]
